FAERS Safety Report 7030157-8 (Version None)
Quarter: 2010Q4

REPORT INFORMATION
  Report Type: 
  Country: None (occurrence: None)
  Receive Date: 20101006
  Receipt Date: 20101001
  Transmission Date: 20110411
  Serious: Yes (Death, Hospitalization)
  Sender: FDA-Public Use
  Company Number: DE-SANOFI-AVENTIS-200820797GDDC

PATIENT
  Age: 72 Year
  Sex: Male
  Weight: 64 kg

DRUGS (5)
  1. AFLIBERCEPT [Suspect]
     Dosage: DOSE UNIT: 6 MG/KG
     Route: 042
     Dates: start: 20081105, end: 20081105
  2. DOCETAXEL [Suspect]
     Dosage: DOSE UNIT: 75 MG/M**2
     Route: 042
     Dates: start: 20081105, end: 20081105
  3. PREDNISONE [Suspect]
     Route: 048
     Dates: start: 20080813, end: 20081113
  4. OMEP [Concomitant]
     Dates: start: 20080812, end: 20081114
  5. RAMIPRIL [Concomitant]
     Dosage: DOSE AS USED: 5/25 MG
     Dates: start: 20080919, end: 20081114

REACTIONS (1)
  - INTESTINAL PERFORATION [None]
